FAERS Safety Report 10932595 (Version 3)
Quarter: 2021Q1

REPORT INFORMATION
  Report Type: Spontaneous
  Country: CN (occurrence: CN)
  Receive Date: 20150320
  Receipt Date: 20210330
  Transmission Date: 20210419
  Serious: Yes (Congenital Anomaly, Other)
  Sender: FDA-Public Use
  Company Number: CN-CIPLA LTD.-2015CN01815

PATIENT

DRUGS (6)
  1. LAMIVUDINE. [Suspect]
     Active Substance: LAMIVUDINE
     Dosage: UNK
     Route: 064
  2. ENTECAVIR. [Suspect]
     Active Substance: ENTECAVIR
     Dosage: UNK
     Route: 064
  3. ADEFOVIR DIPIVOXIL. [Suspect]
     Active Substance: ADEFOVIR DIPIVOXIL
     Route: 064
  4. TELBIVUDINE [Suspect]
     Active Substance: TELBIVUDINE
     Dosage: UNK
     Route: 064
  5. INTERFERON [Suspect]
     Active Substance: INTERFERON
     Dosage: UNK
     Route: 064
  6. TENOFOVIR [Suspect]
     Active Substance: TENOFOVIR
     Dosage: 300 MG/D
     Route: 064

REACTIONS (2)
  - Congenital knee dislocation [Recovered/Resolved]
  - Foetal exposure during pregnancy [Unknown]
